FAERS Safety Report 12663281 (Version 1)
Quarter: 2016Q3

REPORT INFORMATION
  Report Type: Spontaneous
  Country: US (occurrence: US)
  Receive Date: 20160818
  Receipt Date: 20160818
  Transmission Date: 20161109
  Serious: Yes (Hospitalization)
  Sender: FDA-Public Use
  Company Number: US-TAIHO ONCOLOGY INC-EU-2016-02017

PATIENT
  Age: 57 Year
  Sex: Male
  Weight: 98.97 kg

DRUGS (1)
  1. LONSURF [Suspect]
     Active Substance: TIPIRACIL HYDROCHLORIDE\TRIFLURIDINE
     Indication: COLON CANCER
     Dosage: CYCLE 1
     Route: 048
     Dates: start: 20160725, end: 2016

REACTIONS (4)
  - Bronchial obstruction [Unknown]
  - Blood potassium decreased [Unknown]
  - Choking [Unknown]
  - Renal impairment [Unknown]

NARRATIVE: CASE EVENT DATE: 201607
